FAERS Safety Report 16695088 (Version 1)
Quarter: 2019Q3

REPORT INFORMATION
  Report Type: Report from Study
  Country: GB (occurrence: GB)
  Receive Date: 20190813
  Receipt Date: 20190813
  Transmission Date: 20191004
  Serious: Yes (Other)
  Sender: FDA-Public Use
  Company Number: GB-ELI_LILLY_AND_COMPANY-GB201908004829

PATIENT

DRUGS (4)
  1. GEMCITABINE HYDROCHLORIDE. [Suspect]
     Active Substance: GEMCITABINE HYDROCHLORIDE
     Indication: METASTATIC NEOPLASM
     Dosage: 1000 MG/M2, CYCLICAL
     Route: 042
  2. GUADECITABINE [Concomitant]
     Active Substance: GUADECITABINE
     Indication: METASTATIC NEOPLASM
     Dosage: 30 MG/M2
     Route: 058
  3. FILGRASTIM [Concomitant]
     Active Substance: FILGRASTIM
     Indication: METASTATIC NEOPLASM
     Dosage: 300 UG, CYCLICAL
     Route: 058
  4. CISPLATIN. [Concomitant]
     Active Substance: CISPLATIN
     Indication: METASTATIC NEOPLASM
     Dosage: 70 MG/M2, CYCLICAL
     Route: 042

REACTIONS (2)
  - Diarrhoea [Unknown]
  - Hypokalaemia [Unknown]
